FAERS Safety Report 21354290 (Version 2)
Quarter: 2022Q3

REPORT INFORMATION
  Report Type: Report from Study
  Country: JP (occurrence: JP)
  Receive Date: 20220920
  Receipt Date: 20220930
  Transmission Date: 20221027
  Serious: Yes (Other)
  Sender: FDA-Public Use
  Company Number: JP-GLAXOSMITHKLINE-JP2022JPN133327

PATIENT

DRUGS (9)
  1. EPOPROSTENOL SODIUM [Suspect]
     Active Substance: EPOPROSTENOL SODIUM
     Indication: Heritable pulmonary arterial hypertension
     Dosage: UNK
     Route: 042
     Dates: start: 20190207, end: 2021
  2. EPOPROSTENOL SODIUM [Suspect]
     Active Substance: EPOPROSTENOL SODIUM
     Dosage: 80 NG/KG/MIN
     Route: 042
     Dates: start: 201907, end: 2021
  3. EPOPROSTENOL SODIUM [Suspect]
     Active Substance: EPOPROSTENOL SODIUM
     Dosage: 70 NG/KG/MIN
     Route: 042
     Dates: start: 202109
  4. OPSUMIT [Concomitant]
     Active Substance: MACITENTAN
     Indication: Right ventricular failure
     Dosage: 10 MG, 1D
     Route: 048
     Dates: start: 20180913
  5. OPSUMIT [Concomitant]
     Active Substance: MACITENTAN
     Indication: Heritable pulmonary arterial hypertension
  6. ADEMPAS [Concomitant]
     Active Substance: RIOCIGUAT
     Indication: Right ventricular failure
     Dosage: 7.5 MG, 1D
     Route: 048
     Dates: start: 20180915
  7. ADEMPAS [Concomitant]
     Active Substance: RIOCIGUAT
     Indication: Heritable pulmonary arterial hypertension
  8. UPTRAVI [Concomitant]
     Active Substance: SELEXIPAG
     Indication: Heritable pulmonary arterial hypertension
     Dosage: UNK
     Dates: start: 201809, end: 201902
  9. SPIRONOLACTONE [Concomitant]
     Active Substance: SPIRONOLACTONE
     Indication: Right ventricular failure
     Dosage: 50 MG, 1D
     Route: 048
     Dates: start: 20180916

REACTIONS (5)
  - Pericardial effusion [Recovering/Resolving]
  - Cardiomegaly [Recovered/Resolved]
  - Dyspnoea [Unknown]
  - Right ventricular failure [Unknown]
  - Therapeutic product effect incomplete [Unknown]

NARRATIVE: CASE EVENT DATE: 20210801
